FAERS Safety Report 4722473-7 (Version None)
Quarter: 2005Q3

REPORT INFORMATION
  Report Type: 
  Country: None (occurrence: None)
  Receive Date: 20050722
  Receipt Date: 20050504
  Transmission Date: 20060218
  Serious: No
  Sender: FDA-Public Use
  Company Number: US-GLAXOSMITHKLINE-A0557274A

PATIENT
  Age: 71 Year
  Sex: Male

DRUGS (8)
  1. AVANDIA [Suspect]
     Dosage: 4MG PER DAY
     Route: 048
     Dates: start: 20050130
  2. GLYBURIDE [Concomitant]
     Route: 065
  3. METFORMIN [Concomitant]
  4. CYCLOBENZAPRINE HCL [Concomitant]
  5. FELODIPINE [Concomitant]
  6. LITHIUM CARBONATE [Concomitant]
  7. IRBESARTAN [Concomitant]
  8. NIACIN [Concomitant]

REACTIONS (1)
  - DRUG INEFFECTIVE [None]
